FAERS Safety Report 17710084 (Version 1)
Quarter: 2020Q2

REPORT INFORMATION
  Report Type: Report from Study
  Country: None (occurrence: US)
  Receive Date: 20200427
  Receipt Date: 20200427
  Transmission Date: 20200714
  Serious: Yes (Other)
  Sender: FDA-Public Use
  Company Number: US-ABBVIE-19K-163-2884905-00

PATIENT
  Sex: Female

DRUGS (1)
  1. HUMIRA [Suspect]
     Active Substance: ADALIMUMAB
     Indication: HIDRADENITIS
     Route: 058

REACTIONS (9)
  - Vertigo [Not Recovered/Not Resolved]
  - Contusion [Unknown]
  - Knee arthroplasty [Not Recovered/Not Resolved]
  - Arthralgia [Unknown]
  - Trigger finger [Unknown]
  - Back pain [Unknown]
  - Pain in extremity [Unknown]
  - Ear operation [Unknown]
  - Tendonitis [Unknown]
